FAERS Safety Report 25413859 (Version 1)
Quarter: 2025Q2

REPORT INFORMATION
  Report Type: Spontaneous
  Country: US (occurrence: US)
  Receive Date: 20250609
  Receipt Date: 20250609
  Transmission Date: 20250716
  Serious: No
  Sender: PFIZER
  Company Number: US-PFIZER INC-PV202500016050

PATIENT
  Age: 88 Year
  Sex: Female
  Weight: 63.946 kg

DRUGS (3)
  1. BRAFTOVI [Suspect]
     Active Substance: ENCORAFENIB
     Dosage: 225 MG, DAILY (TAKE 2 CAPSULES (150MG TOTAL) EVERY MORNING AND 1 CAPSULE (75MG TOTAL) EVERY EVENING)
     Route: 048
     Dates: start: 20241213
  2. MEKTOVI [Suspect]
     Active Substance: BINIMETINIB
     Dosage: 45 MG, DAILY (TAKE 2 TABLETS (30 MG TOTAL) EVERY MORNING AND 1 TABLET (15 MG TOTAL) EVERY EVENING)
     Route: 048
     Dates: start: 20241213
  3. CELEBREX [Concomitant]
     Active Substance: CELECOXIB
     Indication: Pain
     Dosage: UNK, DAILY (TAKE DAILY AS NEEDED FOR PAIN)
     Route: 048

REACTIONS (3)
  - Off label use [Unknown]
  - Taste disorder [Unknown]
  - Product physical issue [Unknown]

NARRATIVE: CASE EVENT DATE: 20241213
